FAERS Safety Report 7851587-8 (Version None)
Quarter: 2011Q4

REPORT INFORMATION
  Report Type: 
  Country: None (occurrence: None)
  Receive Date: 20111014
  Receipt Date: 20110927
  Transmission Date: 20120403
  Serious: Yes (Life-Threatening, Other)
  Sender: FDA-Public Use
  Company Number: OMX-2011-00036

PATIENT
  Age: 39 Year
  Sex: Female
  Weight: 88.4514 kg

DRUGS (2)
  1. EVICEL [Suspect]
     Indication: HAEMOSTASIS
     Dosage: EPILESIONAL
     Dates: start: 20110824, end: 20110824
  2. APPLICATOR (SPRAY (NOT INHALATION)) [Concomitant]

REACTIONS (7)
  - END-TIDAL CO2 DECREASED [None]
  - GENERAL PHYSICAL HEALTH DETERIORATION [None]
  - CARDIAC ARREST [None]
  - HYPOTENSION [None]
  - AIR EMBOLISM [None]
  - PULSELESS ELECTRICAL ACTIVITY [None]
  - BRADYCARDIA [None]
